FAERS Safety Report 8068824-X (Version None)
Quarter: 2012Q1

REPORT INFORMATION
  Report Type: 
  Country: None (occurrence: None)
  Receive Date: 20120125
  Receipt Date: 20120118
  Transmission Date: 20120608
  Serious: Yes (Life-Threatening, Hospitalization, Other)
  Sender: FDA-Public Use
  Company Number: GB-BRISTOL-MYERS SQUIBB COMPANY-16265365

PATIENT
  Age: 69 Year
  Sex: Male

DRUGS (10)
  1. ASPIRIN [Suspect]
     Indication: ACUTE MYOCARDIAL INFARCTION
     Route: 048
     Dates: end: 20111209
  2. RAMIPRIL [Concomitant]
     Indication: CARDIAC FAILURE
     Dosage: 7.5MG; 5 MG IN THE MORNING AND 2.5 MG AT NIGHT.
     Route: 048
  3. SPRYCEL [Suspect]
     Indication: CHRONIC MYELOID LEUKAEMIA
     Route: 048
     Dates: start: 20111101
  4. RAMIPRIL [Concomitant]
     Indication: HYPERTENSION
     Dosage: 7.5MG; 5 MG IN THE MORNING AND 2.5 MG AT NIGHT.
     Route: 048
  5. SIMVASTATIN [Concomitant]
     Indication: HYPERCHOLESTEROLAEMIA
     Route: 048
  6. ASPIRIN [Suspect]
     Indication: ATRIAL FIBRILLATION
     Route: 048
     Dates: end: 20111209
  7. FUROSEMIDE [Concomitant]
     Indication: CARDIAC FAILURE
     Route: 048
  8. WARFARIN SODIUM [Concomitant]
     Indication: ACUTE MYOCARDIAL INFARCTION
  9. ASPIRIN [Suspect]
     Indication: MYOCARDIAL ISCHAEMIA
     Route: 048
     Dates: end: 20111209
  10. CLOPIDOGREL BISULFATE [Concomitant]
     Indication: ACUTE MYOCARDIAL INFARCTION
     Route: 048
     Dates: start: 20100601, end: 20111101

REACTIONS (2)
  - PLEURAL EFFUSION [None]
  - THROMBOSIS [None]
